FAERS Safety Report 7481768-7 (Version None)
Quarter: 2011Q2

REPORT INFORMATION
  Report Type: 
  Country: None (occurrence: None)
  Receive Date: 20110516
  Receipt Date: 20110509
  Transmission Date: 20111010
  Serious: Yes (Life-Threatening, Hospitalization)
  Sender: FDA-Public Use
  Company Number: D0071303A

PATIENT
  Age: 32 Year
  Sex: Male
  Weight: 66 kg

DRUGS (3)
  1. ERGOCALCIFEROL [Suspect]
     Route: 048
     Dates: start: 20101001, end: 20101226
  2. KALETRA [Suspect]
     Route: 048
     Dates: start: 20100822, end: 20100922
  3. COMBIVIR [Suspect]
     Route: 048
     Dates: start: 20100822, end: 20100922

REACTIONS (6)
  - INFECTION [None]
  - FLANK PAIN [None]
  - TUBULOINTERSTITIAL NEPHRITIS [None]
  - RENAL TUBULAR DISORDER [None]
  - RHINITIS [None]
  - RENAL FAILURE ACUTE [None]
